FAERS Safety Report 18099482 (Version 1)
Quarter: 2020Q3

REPORT INFORMATION
  Report Type: Spontaneous
  Country: FR (occurrence: FR)
  Receive Date: 20200731
  Receipt Date: 20200731
  Transmission Date: 20201103
  Serious: Yes (Hospitalization)
  Sender: FDA-Public Use
  Company Number: FR-MYLANLABS-2020M1067568

PATIENT
  Age: 4 Year
  Sex: Male
  Weight: 14.6 kg

DRUGS (1)
  1. METHOTREXATE MYLAN [Suspect]
     Active Substance: METHOTREXATE SODIUM
     Indication: T-CELL TYPE ACUTE LEUKAEMIA
     Dosage: 5000 MILLIGRAM/SQ. METER, Q2W
     Route: 042
     Dates: start: 20200526

REACTIONS (1)
  - Status epilepticus [Recovered/Resolved]

NARRATIVE: CASE EVENT DATE: 20200701
